FAERS Safety Report 6332397-X (Version None)
Quarter: 2009Q3

REPORT INFORMATION
  Report Type: 
  Country: None (occurrence: None)
  Receive Date: 20090827
  Receipt Date: 20090827
  Transmission Date: 20100115
  Serious: Yes (Hospitalization)
  Sender: FDA-Public Use
  Company Number: None

PATIENT
  Age: 74 Year
  Sex: Male
  Weight: 69.8539 kg

DRUGS (3)
  1. LEVOFLOXACIN [Suspect]
     Indication: BACTERAEMIA
     Dosage: 750MG DAILY IV
     Route: 042
     Dates: start: 20080825, end: 20080828
  2. LEVOFLOXACIN [Suspect]
     Indication: URINARY TRACT INFECTION
     Dosage: 750MG DAILY IV
     Route: 042
     Dates: start: 20080825, end: 20080828
  3. ASPIRIN [Concomitant]

REACTIONS (1)
  - INSOMNIA [None]
